FAERS Safety Report 14037487 (Version 1)
Quarter: 2017Q4

REPORT INFORMATION
  Report Type: Spontaneous
  Country: US (occurrence: US)
  Receive Date: 20171004
  Receipt Date: 20171004
  Transmission Date: 20180321
  Serious: No
  Sender: FDA-Public Use
  Company Number: US-UNICHEM LABORATORIES LIMITED-UCM201708-000213

PATIENT
  Sex: Male

DRUGS (2)
  1. CLONIDINE HCL 0.3 MG TABLET [Suspect]
     Active Substance: CLONIDINE HYDROCHLORIDE
     Indication: HYPERTENSION
     Dates: start: 201705
  2. CLONIDINE HCL 0.3 MG TABLET [Suspect]
     Active Substance: CLONIDINE HYDROCHLORIDE

REACTIONS (2)
  - Physical disability [Unknown]
  - Somnolence [Unknown]
